FAERS Safety Report 9135882 (Version 1)
Quarter: 2013Q1

REPORT INFORMATION
  Report Type: Spontaneous
  Country: US (occurrence: US)
  Receive Date: 20130219
  Receipt Date: 20130219
  Transmission Date: 20140127
  Serious: No
  Sender: FDA-Public Use
  Company Number: US-BRISTOL-MYERS SQUIBB COMPANY-17125337

PATIENT
  Age: 61 Year
  Sex: Female
  Weight: 122.45 kg

DRUGS (1)
  1. ABATACEPT SUBQ INJECTION 125MG/ML [Suspect]
     Indication: RHEUMATOID ARTHRITIS
     Dosage: INF 8?RECENT DOSE 9NOV12

REACTIONS (6)
  - Tearfulness [Unknown]
  - Hyperventilation [Unknown]
  - Musculoskeletal pain [Unknown]
  - Asthenia [Unknown]
  - Malaise [Unknown]
  - Drug ineffective [Unknown]
